FAERS Safety Report 8382092-0 (Version None)
Quarter: 2012Q1

REPORT INFORMATION
  Report Type: 
  Country: None (occurrence: None)
  Receive Date: 20120323
  Receipt Date: 20110513
  Transmission Date: 20120608
  Serious: Yes (Life-Threatening)
  Sender: FDA-Public Use
  Company Number: 163-21880-11051765

PATIENT
  Age: 71 Year
  Sex: Male

DRUGS (4)
  1. REVLIMID [Suspect]
     Indication: MULTIPLE MYELOMA
     Dosage: 5 MG, DAILY FOR 21 DAYS, PO
     Route: 048
     Dates: start: 20110401
  2. METOPROLOL TARTRATE [Concomitant]
  3. LANTUS [Concomitant]
  4. NITROGLYCERIN [Concomitant]

REACTIONS (1)
  - PNEUMONIA [None]
